FAERS Safety Report 9809860 (Version 3)
Quarter: 2015Q1

REPORT INFORMATION
  Report Type: Spontaneous
  Country: US (occurrence: US)
  Receive Date: 20140110
  Receipt Date: 20150219
  Transmission Date: 20150721
  Serious: Yes (Death, Other)
  Sender: FDA-Public Use
  Company Number: US-SANOFI-AVENTIS-2013SA067938

PATIENT
  Age: 49 Year
  Sex: Male

DRUGS (6)
  1. PLAVIX [Suspect]
     Active Substance: CLOPIDOGREL BISULFATE
     Indication: TRANSIENT ISCHAEMIC ATTACK
     Route: 065
     Dates: start: 20100122, end: 20110805
  2. PLAVIX [Suspect]
     Active Substance: CLOPIDOGREL BISULFATE
     Indication: ACUTE CORONARY SYNDROME
     Route: 065
     Dates: start: 20100122, end: 20110805
  3. ASPIRIN. [Concomitant]
     Active Substance: ASPIRIN
     Dates: start: 20011022, end: 20110711
  4. PLAVIX [Suspect]
     Active Substance: CLOPIDOGREL BISULFATE
     Indication: MYOCARDIAL INFARCTION
     Route: 065
     Dates: start: 20100122, end: 20110805
  5. PLAVIX [Suspect]
     Active Substance: CLOPIDOGREL BISULFATE
     Indication: CEREBROVASCULAR ACCIDENT
     Route: 065
     Dates: start: 20100122, end: 20110805
  6. WARFARIN [Concomitant]
     Active Substance: WARFARIN

REACTIONS (5)
  - Hemiplegia [Unknown]
  - Myocardial infarction [Unknown]
  - Death [Fatal]
  - Cerebrovascular accident [Unknown]
  - Speech disorder [Unknown]

NARRATIVE: CASE EVENT DATE: 20110805
